FAERS Safety Report 17357385 (Version 2)
Quarter: 2020Q3

REPORT INFORMATION
  Report Type: Spontaneous
  Country: US (occurrence: US)
  Receive Date: 20200131
  Receipt Date: 20200914
  Transmission Date: 20201102
  Serious: No
  Sender: FDA-Public Use
  Company Number: US-TEVA-2020-US-1180789

PATIENT
  Sex: Female

DRUGS (1)
  1. METOPROLOL. [Suspect]
     Active Substance: METOPROLOL
     Indication: ESSENTIAL TREMOR
     Dates: start: 2005

REACTIONS (5)
  - Product use in unapproved indication [Unknown]
  - Adverse drug reaction [Unknown]
  - Allergic reaction to excipient [Unknown]
  - Product prescribing error [Unknown]
  - Drug intolerance [Unknown]
